FAERS Safety Report 4482032-0 (Version None)
Quarter: 2004Q4

REPORT INFORMATION
  Report Type: 
  Country: None (occurrence: None)
  Receive Date: 20041019
  Receipt Date: 20041019
  Transmission Date: 20050328
  Serious: Yes (Hospitalization)
  Sender: FDA-Public Use
  Company Number: None

PATIENT
  Age: 46 Year
  Sex: Female
  Weight: 44.4525 kg

DRUGS (10)
  1. IRESSA [Suspect]
     Indication: ADENOCARCINOMA PANCREAS
     Dosage: 250 MG   DAILY ORAL
     Route: 048
     Dates: start: 20041009, end: 20041018
  2. SYNTHROID [Concomitant]
  3. VIOXX [Concomitant]
  4. LASIX [Concomitant]
  5. ALDACTONE [Concomitant]
  6. OXYCONTIN [Concomitant]
  7. LEXAPRO [Concomitant]
  8. POTASSIUM SUPPLEMENT [Concomitant]
  9. COLACE [Concomitant]
  10. CALCIUM [Concomitant]

REACTIONS (2)
  - BOWEL SOUNDS ABNORMAL [None]
  - VOMITING [None]
